FAERS Safety Report 23303412 (Version 1)
Quarter: 2023Q4

REPORT INFORMATION
  Report Type: Spontaneous
  Country: CN (occurrence: CN)
  Receive Date: 20231215
  Receipt Date: 20231215
  Transmission Date: 20240110
  Serious: Yes (Other)
  Sender: FDA-Public Use
  Company Number: CN-009507513-2312CHN005847

PATIENT
  Age: 81 Year
  Sex: Female

DRUGS (3)
  1. JANUMET [Suspect]
     Active Substance: METFORMIN HYDROCHLORIDE\SITAGLIPTIN PHOSPHATE
     Indication: Diabetes mellitus
     Dosage: 1 TABLET, BID
     Route: 048
     Dates: start: 20231122, end: 20231124
  2. JANUVIA [Suspect]
     Active Substance: SITAGLIPTIN PHOSPHATE
     Indication: Blood glucose abnormal
     Dosage: UNK
     Route: 048
     Dates: end: 20231122
  3. GLIMEPIRIDE [Suspect]
     Active Substance: GLIMEPIRIDE
     Indication: Blood glucose abnormal
     Dosage: UNK
     Route: 048

REACTIONS (6)
  - Diabetes mellitus inadequate control [Unknown]
  - Diarrhoea [Recovering/Resolving]
  - Asthenia [Recovering/Resolving]
  - Decreased appetite [Unknown]
  - Discomfort [Unknown]
  - Dysphoria [Unknown]

NARRATIVE: CASE EVENT DATE: 20231122
